FAERS Safety Report 8114718-0 (Version None)
Quarter: 2012Q1

REPORT INFORMATION
  Report Type: 
  Country: None (occurrence: None)
  Receive Date: 20120206
  Receipt Date: 20120125
  Transmission Date: 20120608
  Serious: Yes (Other)
  Sender: FDA-Public Use
  Company Number: US-PFIZER INC-2012021210

PATIENT
  Sex: Male

DRUGS (1)
  1. SERTRALINE HYDROCHLORIDE [Suspect]
     Indication: DEPRESSION
     Dosage: 100 MG, 1X/DAY
     Route: 048
     Dates: start: 20110601

REACTIONS (3)
  - ASPARTATE AMINOTRANSFERASE ABNORMAL [None]
  - TRANSAMINASES INCREASED [None]
  - ALANINE AMINOTRANSFERASE ABNORMAL [None]
